FAERS Safety Report 4765616-1 (Version None)
Quarter: 2005Q3

REPORT INFORMATION
  Report Type: 
  Country: None (occurrence: None)
  Receive Date: 20050906
  Receipt Date: 20050825
  Transmission Date: 20060218
  Serious: Yes (Other)
  Sender: FDA-Public Use
  Company Number: 2005073260

PATIENT
  Age: 50 Year
  Sex: Male

DRUGS (1)
  1. CELEBREX [Suspect]
     Indication: SPONDYLITIS

REACTIONS (2)
  - OSTEOARTHRITIS [None]
  - TRANSIENT ISCHAEMIC ATTACK [None]
